FAERS Safety Report 20704691 (Version 1)
Quarter: 2022Q2

REPORT INFORMATION
  Report Type: Spontaneous
  Country: US (occurrence: None)
  Receive Date: 20220412
  Receipt Date: 20220412
  Transmission Date: 20220720
  Serious: No
  Sender: FDA-Public Use
  Company Number: None

PATIENT
  Age: 47 Year
  Sex: Female
  Weight: 95.25 kg

DRUGS (1)
  1. COSENTYX [Suspect]
     Active Substance: SECUKINUMAB
     Dates: start: 20220211

REACTIONS (5)
  - Gastrooesophageal reflux disease [None]
  - Migraine [None]
  - Vomiting [None]
  - Muscle twitching [None]
  - Therapy cessation [None]

NARRATIVE: CASE EVENT DATE: 20220224
